FAERS Safety Report 4679311-0 (Version None)
Quarter: 2005Q2

REPORT INFORMATION
  Report Type: 
  Country: None (occurrence: None)
  Receive Date: 20050531
  Receipt Date: 20050516
  Transmission Date: 20051028
  Serious: Yes (Other)
  Sender: FDA-Public Use
  Company Number: B0359530A

PATIENT
  Sex: Male

DRUGS (1)
  1. PAXIL [Suspect]
     Indication: PANIC REACTION
     Dates: start: 19980101

REACTIONS (22)
  - ALCOHOL USE [None]
  - ANXIETY [None]
  - CONDITION AGGRAVATED [None]
  - DEPRESSED MOOD [None]
  - DRUG INTOLERANCE [None]
  - DRUG WITHDRAWAL SYNDROME [None]
  - DRY MOUTH [None]
  - FEELING ABNORMAL [None]
  - GRAND MAL CONVULSION [None]
  - HALLUCINATION, AUDITORY [None]
  - HYPERHIDROSIS [None]
  - INTENTIONAL SELF-INJURY [None]
  - MULTIPLE DRUG OVERDOSE [None]
  - NECK PAIN [None]
  - PALPITATIONS [None]
  - PANIC ATTACK [None]
  - PARAESTHESIA ORAL [None]
  - SELF MUTILATION [None]
  - SUICIDAL IDEATION [None]
  - TEMPORAL LOBE EPILEPSY [None]
  - TINNITUS [None]
  - TREMOR [None]
